FAERS Safety Report 21628314 (Version 2)
Quarter: 2022Q4

REPORT INFORMATION
  Report Type: Spontaneous
  Country: ES (occurrence: ES)
  Receive Date: 20221122
  Receipt Date: 20221129
  Transmission Date: 20230112
  Serious: Yes (Other)
  Sender: FDA-Public Use
  Company Number: ES-BEH-2022152323

PATIENT
  Age: 48 Year
  Sex: Male

DRUGS (3)
  1. COAGULATION FACTOR IX RECOMBINANT HUMAN [Suspect]
     Active Substance: COAGULATION FACTOR IX RECOMBINANT HUMAN
     Indication: Factor IX deficiency
     Dosage: 37.5 INTERNATIONAL UNIT, QW
     Route: 065
  2. COAGULATION FACTOR IX RECOMBINANT HUMAN [Suspect]
     Active Substance: COAGULATION FACTOR IX RECOMBINANT HUMAN
     Dosage: 37.5 INTERNATIONAL UNIT/KILOGRAM
     Route: 065
  3. COAGULATION FACTOR IX RECOMBINANT HUMAN [Concomitant]
     Active Substance: COAGULATION FACTOR IX RECOMBINANT HUMAN
     Dosage: 40 INTERNATIONAL UNIT, BIW
     Route: 065

REACTIONS (3)
  - Acute coronary syndrome [Unknown]
  - Electrocardiogram ST segment elevation [Unknown]
  - Chest pain [Unknown]
